FAERS Safety Report 23275542 (Version 2)
Quarter: 2023Q4

REPORT INFORMATION
  Report Type: Spontaneous
  Country: DE (occurrence: DE)
  Receive Date: 20231208
  Receipt Date: 20231208
  Transmission Date: 20240109
  Serious: Yes (Other)
  Sender: FDA-Public Use
  Company Number: DE-ASTELLAS-2023US032513

PATIENT
  Age: 65 Year
  Sex: Male

DRUGS (16)
  1. PADCEV [Suspect]
     Active Substance: ENFORTUMAB VEDOTIN-EJFV
     Indication: Transitional cell carcinoma metastatic
     Dosage: 77.5 MG, CYCLIC (PER CYCLE 3 TIMES, 1 CYCLE = 4 WEEKS, WEEKLY ONE ADMINISTRATION FOR 3 WEEKS)
     Route: 065
     Dates: start: 20230601
  2. AMITRIPTYLINE [Concomitant]
     Active Substance: AMITRIPTYLINE
     Indication: Product used for unknown indication
     Dosage: 50 MG, ONCE DAILY (0-0-0-50 MG)
     Route: 065
  3. POLYETHYLENE GLYCOLS [Concomitant]
     Active Substance: POLYETHYLENE GLYCOLS
     Indication: Product used for unknown indication
  4. METAMIZOLE [Concomitant]
     Active Substance: METAMIZOLE
     Indication: Product used for unknown indication
     Dosage: 30 DROP, 4 TIMES DAILY (30-30-30-30 DROPS)
     Route: 065
  5. ONDANSETRON DURA [Concomitant]
     Indication: Product used for unknown indication
     Dosage: 1 DF, TWICE DAILY (1-0-1-0 PIECE)
     Route: 065
  6. PANTOPRAZOLE SODIUM [Concomitant]
     Active Substance: PANTOPRAZOLE SODIUM
     Indication: Product used for unknown indication
     Dosage: 1 DF, TWICE DAILY (1-0-1-0 PIECE)
     Route: 065
  7. PREGABALIN [Concomitant]
     Active Substance: PREGABALIN
     Indication: Product used for unknown indication
     Dosage: 1 DF, TWICE DAILY (1-0-1-0 PIECE)
     Route: 065
  8. TORSEMIDE [Concomitant]
     Active Substance: TORSEMIDE
     Indication: Product used for unknown indication
     Dosage: 1 DF, ONCE DAILY (1-0-0-0  PIECE)
     Route: 065
  9. BUTYLSCOPOLAMINE BROMIDE [Concomitant]
     Active Substance: BUTYLSCOPOLAMINE BROMIDE
     Indication: Product used for unknown indication
     Dosage: 1 DF, THRICE DAILY, 1-1-1 AMPOULE (AS NEEDED)
     Route: 065
  10. MORPHINE SULFATE [Concomitant]
     Active Substance: MORPHINE SULFATE
     Indication: Product used for unknown indication
     Dosage: 1 DF, THRICE DAILY, 1-1-1 CAPSULES (AS NEEDED)
     Route: 065
  11. HALOPERIDOL [Concomitant]
     Active Substance: HALOPERIDOL
     Indication: Product used for unknown indication
     Dosage: 1-1-1 DROPS, AS NEEDED (DO NOT TAKE WITH BLACK TEA (TANNINS))
     Route: 065
  12. LORAZEPAM [Concomitant]
     Active Substance: LORAZEPAM
     Indication: Product used for unknown indication
     Dosage: 1 DF, ONCE DAILY 1-0-0 TABLET (AS NEEDED)
     Route: 065
  13. MCP-RATIOPHARM [Concomitant]
     Active Substance: METOCLOPRAMIDE HYDROCHLORIDE
     Indication: Product used for unknown indication
     Dosage: 3X1TABLET 824H, AS NEEDED
     Route: 065
  14. MORPHINE [Concomitant]
     Active Substance: MORPHINE
     Indication: Product used for unknown indication
     Dosage: 1 DF, THRICE DAILY (1-1-1 GLASS BOTTLE (AS NEEDED))
     Route: 065
  15. DIMENHYDRINATE [Concomitant]
     Active Substance: DIMENHYDRINATE
     Indication: Product used for unknown indication
     Dosage: 1 DF, ONCE DAILY (1-0-0 TABLET (AS NEEDED))
     Route: 065
  16. FENTANYL [Concomitant]
     Active Substance: FENTANYL\FENTANYL CITRATE
     Indication: Product used for unknown indication
     Dosage: 1 DF, EVERY 3 DAYS (1-0-0 PLASTER) 75 ?G/H 0.075 MG/H (12.6?) PLASTER FROM 04-NOV
     Route: 065

REACTIONS (4)
  - Pneumonia [Recovering/Resolving]
  - Immunodeficiency [Unknown]
  - Hypoventilation [Unknown]
  - General physical health deterioration [Unknown]

NARRATIVE: CASE EVENT DATE: 20231026
